FAERS Safety Report 10068694 (Version 2)
Quarter: 2014Q2

REPORT INFORMATION
  Report Type: Spontaneous
  Country: US (occurrence: US)
  Receive Date: 20140409
  Receipt Date: 20140409
  Transmission Date: 20141212
  Serious: No
  Sender: FDA-Public Use
  Company Number: US-MYLANLABS-2014S1000759

PATIENT
  Age: 71 Year
  Sex: Female

DRUGS (3)
  1. METOPROLOL SUCCINATE EXTENDED-RELEASE TABLETS USP [Suspect]
     Indication: BLOOD PRESSURE INCREASED
     Route: 048
     Dates: start: 201311, end: 20140110
  2. FLUOXETINE [Concomitant]
  3. TYLENOL [Concomitant]

REACTIONS (1)
  - Headache [Not Recovered/Not Resolved]
